FAERS Safety Report 5198686-X (Version None)
Quarter: 2007Q1

REPORT INFORMATION
  Report Type: 
  Country: None (occurrence: None)
  Receive Date: 20070104
  Receipt Date: 20061227
  Transmission Date: 20070707
  Serious: Yes (Death)
  Sender: FDA-Public Use
  Company Number: JP-SANOFI-SYNTHELABO-A01200611285

PATIENT
  Age: 75 Year
  Sex: Male

DRUGS (3)
  1. FLUOROURACIL [Suspect]
     Dosage: 450 MG/BODY IN BOLUS THEN 2750 MG/BODY AS INFUSION
     Route: 041
     Dates: start: 20061225, end: 20061225
  2. LEUCOVORIN CALCIUM [Suspect]
     Route: 041
     Dates: start: 20061225, end: 20061225
  3. OXALIPLATIN [Suspect]
     Indication: COLON CANCER
     Route: 041
     Dates: start: 20061225, end: 20061225

REACTIONS (2)
  - HYPERAMMONAEMIA [None]
  - METABOLIC ENCEPHALOPATHY [None]
